FAERS Safety Report 9241507 (Version 4)
Quarter: 2013Q3

REPORT INFORMATION
  Report Type: Spontaneous
  Country: US (occurrence: US)
  Receive Date: 20130419
  Receipt Date: 20130909
  Transmission Date: 20140515
  Serious: Yes (Hospitalization)
  Sender: FDA-Public Use
  Company Number: US-GENZYME-CERZ-1002916

PATIENT
  Age: 16 Year
  Sex: Male
  Weight: 65.5 kg

DRUGS (7)
  1. CEREZYME [Suspect]
     Indication: GAUCHER^S DISEASE
     Dosage: 58.01 MG/KG, 1X/W
     Route: 042
     Dates: start: 2002
  2. CLONAZEPAM [Concomitant]
     Indication: CONVULSION
     Dosage: 1 MG, Q12HR
     Route: 065
  3. NEXIUM [Concomitant]
     Indication: PRODUCT USED FOR UNKNOWN INDICATION
     Dosage: 40 MG, Q12HR
     Route: 065
  4. LAMICTAL [Concomitant]
     Indication: CONVULSION
     Dosage: 25 MG, Q12HR
     Route: 065
  5. LORATADINE [Concomitant]
     Indication: MULTIPLE ALLERGIES
     Dosage: 10 MG, QD
     Route: 065
  6. DEPAKOTE [Concomitant]
     Indication: CONVULSION
     Dosage: 750 MG, Q12HR
     Route: 065
  7. CONCERTA [Concomitant]
     Indication: ATTENTION DEFICIT/HYPERACTIVITY DISORDER
     Dosage: 36 MG, UNK
     Route: 065

REACTIONS (3)
  - Pneumonia aspiration [Not Recovered/Not Resolved]
  - Lung infection [Not Recovered/Not Resolved]
  - Pulmonary oedema [Recovered/Resolved]
